FAERS Safety Report 25764684 (Version 3)
Quarter: 2025Q4

REPORT INFORMATION
  Report Type: Spontaneous
  Country: AR (occurrence: AR)
  Receive Date: 20250905
  Receipt Date: 20251024
  Transmission Date: 20260117
  Serious: Yes (Other)
  Sender: ROCHE
  Company Number: AR-002147023-NVSC2025AR137647

PATIENT
  Age: 36 Year
  Sex: Female

DRUGS (6)
  1. XOLAIR [Suspect]
     Active Substance: OMALIZUMAB
     Indication: Chronic spontaneous urticaria
     Dosage: 300 MILLIGRAM PER MILLILITRE, QMO
     Route: 058
     Dates: start: 20250129, end: 202508
  2. XOLAIR [Suspect]
     Active Substance: OMALIZUMAB
     Dosage: 300 MILLIGRAM PER MILLILITRE (EVERY 15 DAYS)
     Route: 058
     Dates: start: 202508
  3. XOLAIR [Suspect]
     Active Substance: OMALIZUMAB
     Dosage: UNK (TWICE UP TO THE TIME)
     Route: 058
  4. FEXOFENADINE [Concomitant]
     Active Substance: FEXOFENADINE HYDROCHLORIDE
     Indication: Product used for unknown indication
     Dosage: 180 MG, QD
  5. LAMOTRIGINE [Concomitant]
     Active Substance: LAMOTRIGINE
     Indication: Product used for unknown indication
     Dosage: 50 MG, QD
  6. LEVOTHYROXINE [Concomitant]
     Active Substance: LEVOTHYROXINE
     Indication: Product used for unknown indication

REACTIONS (4)
  - Angioedema [Recovered/Resolved]
  - Urticaria [Not Recovered/Not Resolved]
  - Off label use [Unknown]
  - Condition aggravated [Unknown]

NARRATIVE: CASE EVENT DATE: 20250801
